FAERS Safety Report 6800822-3 (Version None)
Quarter: 2010Q2

REPORT INFORMATION
  Report Type: 
  Country: None (occurrence: None)
  Receive Date: 20100629
  Receipt Date: 20100617
  Transmission Date: 20101027
  Serious: Yes (Hospitalization)
  Sender: FDA-Public Use
  Company Number: US-JNJFOC-20100300481

PATIENT
  Sex: Female
  Weight: 93.9 kg

DRUGS (3)
  1. REMICADE [Suspect]
     Indication: CROHN'S DISEASE
     Dosage: DOSE 5 VIALS
     Route: 042
  2. REMICADE [Suspect]
     Dosage: DOSE 5 VIALS
     Route: 042
  3. REMICADE [Suspect]
     Dosage: DOSE 5 VIALS
     Route: 042

REACTIONS (5)
  - DIARRHOEA [None]
  - DRUG INEFFECTIVE [None]
  - ELECTROLYTE IMBALANCE [None]
  - INTESTINAL OBSTRUCTION [None]
  - INTESTINAL PERFORATION [None]
